FAERS Safety Report 5655928-1 (Version None)
Quarter: 2008Q1

REPORT INFORMATION
  Report Type: 
  Country: None (occurrence: None)
  Receive Date: 20080307
  Receipt Date: 20080225
  Transmission Date: 20080703
  Serious: Yes (Hospitalization, Other)
  Sender: FDA-Public Use
  Company Number: US-PFIZER INC-2008017518

PATIENT
  Sex: Female
  Weight: 58.5 kg

DRUGS (6)
  1. LYRICA [Suspect]
     Indication: MULTIPLE SCLEROSIS
     Dates: start: 20080101, end: 20080225
  2. LYRICA [Suspect]
     Indication: NEURALGIA
  3. INTERFERON BETA [Concomitant]
  4. BACLOFEN [Concomitant]
  5. POTASSIUM CHLORIDE [Concomitant]
  6. LASIX [Concomitant]

REACTIONS (17)
  - ABASIA [None]
  - ACCIDENTAL OVERDOSE [None]
  - ANAEMIA [None]
  - ANKLE FRACTURE [None]
  - APHONIA [None]
  - ASTHENIA [None]
  - DYSPNOEA [None]
  - ERYTHEMA [None]
  - FACE OEDEMA [None]
  - FALL [None]
  - HALLUCINATION [None]
  - HYPOAESTHESIA [None]
  - LOWER LIMB FRACTURE [None]
  - MUSCULAR WEAKNESS [None]
  - NIGHTMARE [None]
  - RESPIRATORY DISTRESS [None]
  - WEIGHT DECREASED [None]
